FAERS Safety Report 13043380 (Version 1)
Quarter: 2016Q4

REPORT INFORMATION
  Report Type: Report from Study
  Country: JP (occurrence: JP)
  Receive Date: 20161220
  Receipt Date: 20161220
  Transmission Date: 20170207
  Serious: Yes (Other)
  Sender: FDA-Public Use
  Company Number: JP-AMGEN-JPNSL2016176238

PATIENT
  Age: 78 Year
  Sex: Female
  Weight: 48 kg

DRUGS (1)
  1. PROLIA [Suspect]
     Active Substance: DENOSUMAB
     Indication: OSTEOPOROSIS
     Dosage: UNK
     Route: 065

REACTIONS (3)
  - Memory impairment [Unknown]
  - Fracture [Unknown]
  - Osteoarthritis [Unknown]
